FAERS Safety Report 8504746-5 (Version None)
Quarter: 2012Q3

REPORT INFORMATION
  Report Type: 
  Country: None (occurrence: None)
  Receive Date: 20120712
  Receipt Date: 20120601
  Transmission Date: 20120928
  Serious: Yes (Death)
  Sender: FDA-Public Use
  Company Number: JP-MSD-1204USA03552

PATIENT

DRUGS (2)
  1. TIENAM IV [Suspect]
     Indication: PNEUMONIA
     Dosage: 0.5 G, QD
     Route: 042
     Dates: start: 20120417, end: 20120417
  2. DEPAKENE [Concomitant]
     Indication: MANIA
     Dosage: DAILY DOSAGE UNKNOWN
     Dates: end: 20120406

REACTIONS (2)
  - PNEUMONIA [None]
  - GRAND MAL CONVULSION [None]
